FAERS Safety Report 10387093 (Version 1)
Quarter: 2014Q1

REPORT INFORMATION
  Report Type: Spontaneous
  Country: US (occurrence: None)
  Receive Date: 20140306
  Receipt Date: 20140306
  Transmission Date: 20141002
  Serious: Yes (Hospitalization, Disabling, Other)
  Sender: FDA-Public Use
  Company Number: 163-21880-13043074

PATIENT
  Age: 80 Year
  Sex: Male
  Weight: 100.7 kg

DRUGS (3)
  1. REVLIMID [Suspect]
     Indication: PLASMA CELL MYELOMA
     Route: 048
     Dates: start: 20130330, end: 20130403
  2. PERCOCET (OXYCOCET) [Concomitant]
  3. PROCRIT (ERYTHROPOIETIN) [Concomitant]

REACTIONS (9)
  - Platelet count decreased [None]
  - Infection [None]
  - Asthenia [None]
  - Dyspnoea [None]
  - Back pain [None]
  - Hyperhidrosis [None]
  - Chills [None]
  - Pruritus [None]
  - Pyrexia [None]
